FAERS Safety Report 10543307 (Version 1)
Quarter: 2014Q4

REPORT INFORMATION
  Report Type: Spontaneous
  Country: US (occurrence: None)
  Receive Date: 20141023
  Receipt Date: 20141023
  Transmission Date: 20150529
  Serious: Yes (Other)
  Sender: FDA-Public Use
  Company Number: 001816049A

PATIENT
  Age: 62 Year
  Sex: Female

DRUGS (1)
  1. PROACTIV SOLUTION RENEWING CLEANSER [Suspect]
     Active Substance: BENZOYL PEROXIDE
     Dosage: ONCE DAILY DERMAL
     Dates: start: 20140902, end: 20140918

REACTIONS (2)
  - Foreign body in eye [None]
  - Eye pain [None]

NARRATIVE: CASE EVENT DATE: 20140918
